FAERS Safety Report 20214164 (Version 1)
Quarter: 2021Q4

REPORT INFORMATION
  Report Type: Spontaneous
  Country: US (occurrence: US)
  Receive Date: 20211221
  Receipt Date: 20211221
  Transmission Date: 20220303
  Serious: Yes (Hospitalization)
  Sender: FDA-Public Use
  Company Number: US-MYLANLABS-2021M1094549

PATIENT
  Age: 70 Year
  Sex: Male

DRUGS (2)
  1. WARFARIN [Suspect]
     Active Substance: WARFARIN
     Indication: Deep vein thrombosis
     Dosage: UNK
     Route: 065
  2. WARFARIN [Suspect]
     Active Substance: WARFARIN
     Indication: Pulmonary embolism

REACTIONS (6)
  - Cutaneous vasculitis [Recovered/Resolved with Sequelae]
  - Antineutrophil cytoplasmic antibody positive [Recovered/Resolved with Sequelae]
  - Haematoma [Unknown]
  - Penile necrosis [Recovered/Resolved with Sequelae]
  - Ischaemia [Recovered/Resolved with Sequelae]
  - Spontaneous amputation [Recovered/Resolved with Sequelae]
